FAERS Safety Report 15240794 (Version 1)
Quarter: 2018Q3

REPORT INFORMATION
  Report Type: Spontaneous
  Country: US (occurrence: US)
  Receive Date: 20180804
  Receipt Date: 20180804
  Transmission Date: 20181010
  Serious: No
  Sender: FDA-Public Use
  Company Number: US-JNJFOC-20180713526

PATIENT
  Age: 87 Year
  Sex: Female
  Weight: 56.25 kg

DRUGS (1)
  1. TYLENOL REGULAR STRENGTH [Suspect]
     Active Substance: ACETAMINOPHEN
     Indication: SUTURE RELATED COMPLICATION
     Route: 065
     Dates: start: 20180710

REACTIONS (4)
  - Foreign body in respiratory tract [Not Recovered/Not Resolved]
  - Product use complaint [Unknown]
  - Product use in unapproved indication [Unknown]
  - Eructation [Not Recovered/Not Resolved]

NARRATIVE: CASE EVENT DATE: 20180710
